FAERS Safety Report 5394962-6 (Version None)
Quarter: 2007Q3

REPORT INFORMATION
  Report Type: 
  Country: None (occurrence: None)
  Receive Date: 20070724
  Receipt Date: 20070719
  Transmission Date: 20080115
  Serious: Yes (Other)
  Sender: FDA-Public Use
  Company Number: PHEH2007US09297

PATIENT
  Age: 44 Year
  Sex: Female
  Weight: 66.213 kg

DRUGS (3)
  1. DIOVAN [Suspect]
     Indication: HYPERTENSION
  2. DIOVAN [Suspect]
     Dosage: 160 MG, QD
     Route: 048
  3. DIOVAN [Suspect]
     Dosage: 320 MG, QD
     Route: 048
     Dates: start: 20070506

REACTIONS (4)
  - BLOOD UREA DECREASED [None]
  - BLOOD UREA NITROGEN/CREATININE RATIO DECREASED [None]
  - HEART RATE INCREASED [None]
  - HYPONATRAEMIA [None]
